FAERS Safety Report 6327094-0 (Version None)
Quarter: 2009Q3

REPORT INFORMATION
  Report Type: 
  Country: None (occurrence: None)
  Receive Date: 20090825
  Receipt Date: 20090818
  Transmission Date: 20100115
  Serious: Yes (Hospitalization, Congenital Anomaly)
  Sender: FDA-Public Use
  Company Number: A0699225A

PATIENT
  Sex: Male
  Weight: 3.6 kg

DRUGS (4)
  1. PAXIL [Suspect]
     Indication: ANXIETY
     Dosage: 20MG PER DAY
  2. PAXIL CR [Suspect]
     Indication: ANXIETY
  3. KLONOPIN [Concomitant]
  4. VITAMIN TAB [Concomitant]

REACTIONS (5)
  - ARTERIAL DISORDER [None]
  - ATRIAL SEPTAL DEFECT [None]
  - CONGENITAL PULMONARY ARTERY ANOMALY [None]
  - DRUG EXPOSURE DURING PREGNANCY [None]
  - TRANSPOSITION OF THE GREAT VESSELS [None]
